FAERS Safety Report 8058271-9 (Version None)
Quarter: 2012Q1

REPORT INFORMATION
  Report Type: 
  Country: None (occurrence: None)
  Receive Date: 20120120
  Receipt Date: 20120117
  Transmission Date: 20120608
  Serious: Yes (Other)
  Sender: FDA-Public Use
  Company Number: US-PFIZER INC-2011312179

PATIENT
  Sex: Female
  Weight: 92.971 kg

DRUGS (12)
  1. NORVASC [Concomitant]
     Indication: HYPERTENSION
     Dosage: UNK
  2. HYDROCHLOROTHIAZIDE [Concomitant]
     Dosage: UNK
  3. ACETYLSALICYLIC ACID [Concomitant]
     Indication: CARDIAC DISORDER
     Dosage: 81 MG, UNK
  4. FISH OIL [Concomitant]
     Indication: ARTHRALGIA
  5. LYRICA [Suspect]
     Indication: HYPOAESTHESIA
  6. VITAMIN B COMPLEX CAP [Concomitant]
     Dosage: UNK
  7. FISH OIL [Concomitant]
     Indication: ARTHRITIS
     Dosage: UNK
  8. LYRICA [Suspect]
     Indication: NEURALGIA
     Dosage: 100 MG, 3X/DAY
     Route: 048
     Dates: start: 20111221, end: 20111222
  9. NIACIN [Concomitant]
     Indication: BLOOD CHOLESTEROL INCREASED
     Dosage: UNK
  10. VITAMIN D [Concomitant]
     Dosage: UNK
  11. PRAVASTATIN [Concomitant]
     Indication: BLOOD CHOLESTEROL INCREASED
     Dosage: UNK
  12. DIAZIDE [Concomitant]
     Dosage: UNK

REACTIONS (4)
  - FEELING DRUNK [None]
  - DIZZINESS [None]
  - FEELING ABNORMAL [None]
  - BALANCE DISORDER [None]
